FAERS Safety Report 6314546-2 (Version None)
Quarter: 2009Q3

REPORT INFORMATION
  Report Type: 
  Country: None (occurrence: None)
  Receive Date: 20090819
  Receipt Date: 20090810
  Transmission Date: 20100115
  Serious: Yes (Hospitalization, Other)
  Sender: FDA-Public Use
  Company Number: US-AMGEN-QUU356500

PATIENT
  Sex: Female

DRUGS (3)
  1. ENBREL [Suspect]
     Indication: RHEUMATOID ARTHRITIS
     Route: 058
     Dates: start: 20070723
  2. METHOTREXATE [Concomitant]
     Route: 048
     Dates: start: 20070326
  3. FOLIC ACID [Concomitant]
     Dates: start: 20070326

REACTIONS (4)
  - ARTHRITIS INFECTIVE [None]
  - INJECTION SITE HAEMATOMA [None]
  - INJECTION SITE URTICARIA [None]
  - KNEE ARTHROPLASTY [None]
